FAERS Safety Report 5812024-8 (Version None)
Quarter: 2008Q3

REPORT INFORMATION
  Report Type: 
  Country: None (occurrence: None)
  Receive Date: 20080716
  Receipt Date: 20080707
  Transmission Date: 20090109
  Serious: Yes (Hospitalization, Other)
  Sender: FDA-Public Use
  Company Number: PHEH2008US05765

PATIENT
  Sex: Female
  Weight: 68.04 kg

DRUGS (19)
  1. TASIGNA [Suspect]
     Indication: CHRONIC MYELOID LEUKAEMIA
     Dosage: 400 MG, Q12H
     Route: 048
     Dates: start: 20080328, end: 20080609
  2. ZONEGRAN [Concomitant]
     Dosage: 400 MG, QD
  3. LEXAPRO [Concomitant]
     Dosage: 10 MG, QD
  4. XOPENEX [Concomitant]
     Dosage: 2 PUFFS, BID
  5. PREDNISONE TAB [Concomitant]
  6. AMIODARONE HCL [Concomitant]
  7. ASPIRIN [Concomitant]
     Dosage: 81 MG, QD
  8. CARDIZEM CD [Concomitant]
     Dosage: 360 MG, QD
  9. TOPROL-XL [Concomitant]
     Dosage: 50 MG, BID
  10. DIGOXIN [Concomitant]
     Dosage: 0.25 MG, QD
     Route: 042
  11. DIGOXIN [Concomitant]
     Dosage: UNK
     Dates: start: 20080609
  12. COUMADIN [Concomitant]
  13. ATARAX                             /00058403/ [Concomitant]
     Dosage: 25 MG, TID
  14. ELAVIL [Concomitant]
     Dosage: 100 MG, QD
  15. BUMEX [Concomitant]
     Dosage: 1 MG, QD
  16. VALIUM [Concomitant]
     Dosage: 5 MG, QD
  17. LORTAB [Concomitant]
     Dosage: 5 MG, TID
  18. LORTAB [Concomitant]
     Dosage: 5 MG, PRN
  19. FENTANYL [Concomitant]
     Dosage: 0.25 MG PATCH Q3DAYS

REACTIONS (25)
  - ABDOMINAL PAIN [None]
  - APHASIA [None]
  - ASTHENIA [None]
  - ATRIAL FIBRILLATION [None]
  - BLOOD GLUCOSE INCREASED [None]
  - BRAIN OEDEMA [None]
  - CEREBRAL HAEMORRHAGE [None]
  - CONFUSIONAL STATE [None]
  - CSF TEST ABNORMAL [None]
  - DYSARTHRIA [None]
  - DYSPNOEA [None]
  - FACIAL PALSY [None]
  - FALL [None]
  - HAEMORRHAGE INTRACRANIAL [None]
  - HEADACHE [None]
  - HEART RATE INCREASED [None]
  - INTERVERTEBRAL DISC PROTRUSION [None]
  - INTRACRANIAL HAEMATOMA [None]
  - MENTAL STATUS CHANGES [None]
  - MUSCULAR WEAKNESS [None]
  - SARCOIDOSIS [None]
  - SPINAL DISORDER [None]
  - SPONDYLOLYSIS [None]
  - URINARY INCONTINENCE [None]
  - URINARY TRACT INFECTION [None]
